FAERS Safety Report 4839803-8 (Version None)
Quarter: 2005Q4

REPORT INFORMATION
  Report Type: 
  Country: None (occurrence: None)
  Receive Date: 20051129
  Receipt Date: 20050922
  Transmission Date: 20060501
  Serious: Yes (Hospitalization)
  Sender: FDA-Public Use
  Company Number: US-GLAXOSMITHKLINE-A0575431A

PATIENT
  Age: 54 Year
  Sex: Female

DRUGS (7)
  1. WELLBUTRIN [Suspect]
     Indication: DEPRESSION
     Dosage: 100MG THREE TIMES PER DAY
     Route: 048
     Dates: start: 20020101, end: 20050917
  2. ELAVIL [Concomitant]
  3. ATIVAN [Concomitant]
  4. AMBIEN [Concomitant]
  5. ACCUPRIL [Concomitant]
  6. DIURETIC [Concomitant]
  7. PREMPRO [Concomitant]

REACTIONS (1)
  - CONVULSION [None]
